FAERS Safety Report 6896661-8 (Version None)
Quarter: 2010Q3

REPORT INFORMATION
  Report Type: 
  Country: None (occurrence: None)
  Receive Date: 20100729
  Receipt Date: 20100715
  Transmission Date: 20110219
  Serious: Yes (Other)
  Sender: FDA-Public Use
  Company Number: 2010S1000384

PATIENT
  Age: 70 Year
  Sex: Female

DRUGS (2)
  1. LIVALO [Suspect]
     Indication: HYPERCHOLESTEROLAEMIA
     Dosage: 1X; PO, MG; 1X; PO
     Route: 048
     Dates: start: 20050317, end: 20080626
  2. LIVALO [Suspect]
     Indication: HYPERCHOLESTEROLAEMIA
     Dosage: 1X; PO, MG; 1X; PO
     Route: 048
     Dates: start: 20080627, end: 20081002

REACTIONS (1)
  - LYMPHOMA [None]
